FAERS Safety Report 6730168-3 (Version None)
Quarter: 2010Q2

REPORT INFORMATION
  Report Type: 
  Country: None (occurrence: None)
  Receive Date: 20100513
  Receipt Date: 20100504
  Transmission Date: 20101027
  Serious: Yes (Life-Threatening, Hospitalization)
  Sender: FDA-Public Use
  Company Number: 2010SP001304

PATIENT
  Age: 13 Year
  Sex: Male
  Weight: 49.4 kg

DRUGS (5)
  1. CICLESONIDE HFA [Suspect]
     Indication: RHINITIS PERENNIAL
     Dosage: 160 UG;NASAL
     Route: 045
     Dates: start: 20091016, end: 20100422
  2. XYZAL [Concomitant]
  3. ZITHROMAX [Concomitant]
  4. MUCINEX [Concomitant]
  5. PREV MEDS [Concomitant]

REACTIONS (3)
  - AUTOIMMUNE THROMBOCYTOPENIA [None]
  - HAEMATOMA [None]
  - JOINT INJURY [None]
